FAERS Safety Report 16339613 (Version 3)
Quarter: 2019Q3

REPORT INFORMATION
  Report Type: Spontaneous
  Country: US (occurrence: US)
  Receive Date: 20190521
  Receipt Date: 20190827
  Transmission Date: 20191004
  Serious: No
  Sender: FDA-Public Use
  Company Number: US-SA-2019SA137811

PATIENT
  Age: 82 Year
  Sex: Female

DRUGS (1)
  1. LANTUS SOLOSTAR [Suspect]
     Active Substance: INSULIN GLARGINE
     Indication: TYPE 2 DIABETES MELLITUS
     Dosage: 45 U, QD
     Route: 065

REACTIONS (4)
  - Product storage error [Unknown]
  - Product dose omission [Unknown]
  - Blood glucose increased [Unknown]
  - Complication associated with device [Unknown]
